FAERS Safety Report 9518281 (Version 1)
Quarter: 2013Q3

REPORT INFORMATION
  Report Type: Spontaneous
  Country: US (occurrence: None)
  Receive Date: 20130910
  Receipt Date: 20130910
  Transmission Date: 20140515
  Serious: Yes (Other)
  Sender: FDA-Public Use
  Company Number: None

PATIENT
  Age: 34 Year
  Sex: Male
  Weight: 97.52 kg

DRUGS (1)
  1. BOTOX [Suspect]

REACTIONS (3)
  - Ectropion [None]
  - Paraesthesia [None]
  - Nerve injury [None]
